FAERS Safety Report 8535097-0 (Version None)
Quarter: 2012Q3

REPORT INFORMATION
  Report Type: 
  Country: None (occurrence: None)
  Receive Date: 20120724
  Receipt Date: 20120719
  Transmission Date: 20120928
  Serious: No
  Sender: FDA-Public Use
  Company Number: US-PFIZER INC-2012174963

PATIENT
  Sex: Male

DRUGS (3)
  1. SYNTHROID [Concomitant]
     Indication: THYROID FUNCTION TEST ABNORMAL
     Dosage: 0.05 MG, DAILY
  2. GENOTROPIN [Suspect]
     Indication: GROWTH HORMONE DEFICIENCY
     Dosage: 1.2 MG, DAILY
     Dates: start: 20120701
  3. KEPPRA [Concomitant]
     Indication: CONVULSION
     Dosage: 500 MG, 2X/DAY
     Route: 048

REACTIONS (1)
  - RASH [None]
